FAERS Safety Report 14182535 (Version 2)
Quarter: 2017Q4

REPORT INFORMATION
  Report Type: Spontaneous
  Country: US (occurrence: US)
  Receive Date: 20171113
  Receipt Date: 20171120
  Transmission Date: 20180321
  Serious: No
  Sender: FDA-Public Use
  Company Number: US-PFIZER INC-2017483817

PATIENT
  Age: 71 Year
  Sex: Male

DRUGS (19)
  1. IMODIUM [Concomitant]
     Active Substance: LOPERAMIDE HYDROCHLORIDE
     Dosage: 2 MG, 1X/DAY
     Route: 048
  2. NYSTATIN. [Concomitant]
     Active Substance: NYSTATIN
     Dosage: 100000 IU/ML, AS NEEDED (ORAL SUSPENSION)
     Route: 048
  3. LISINOPRIL. [Concomitant]
     Active Substance: LISINOPRIL
     Dosage: 20 MG, 1X/DAY
     Route: 048
  4. TYLENOL [Concomitant]
     Active Substance: ACETAMINOPHEN
     Dosage: 500 MG, AS NEEDED
  5. COMPAZINE [Concomitant]
     Active Substance: PROCHLORPERAZINE MALEATE
     Dosage: 10 MG, AS NEEDED (Q 6 HOURS AS NEEDED)
     Route: 048
  6. LIDOCAINE. [Concomitant]
     Active Substance: LIDOCAINE
     Dosage: 5 ML, 2X/DAY (SWISH AND SPLIT BEFORE MEALS AND AT NIGHT)
     Route: 048
  7. ZOLOFT [Concomitant]
     Active Substance: SERTRALINE HYDROCHLORIDE
     Dosage: 50 MG, 1X/DAY
     Route: 048
  8. SUTENT [Suspect]
     Active Substance: SUNITINIB MALATE
     Indication: RENAL CANCER
     Dosage: 50 MG, CYCLIC  (DAILY FOR 4 WEEKS WITH, 2 WEEKS OFF, EVERY 42 DAYS X 8 CYCLES)
     Route: 048
     Dates: start: 20160901, end: 20171107
  9. MARINOL (ALLOPURINOL) [Concomitant]
     Active Substance: ALLOPURINOL
     Indication: APPETITE DISORDER
     Dosage: 2.5 MG, AS NEEDED (PO BID PRN)
     Route: 048
  10. SIMVASTATIN. [Concomitant]
     Active Substance: SIMVASTATIN
     Dosage: 20 MG, 1X/DAY
     Route: 048
  11. MYRBETRIQ [Concomitant]
     Active Substance: MIRABEGRON
     Dosage: 25 MG, 1X/DAY
     Route: 048
  12. ZOFRAN [Concomitant]
     Active Substance: ONDANSETRON HYDROCHLORIDE
     Indication: NAUSEA
     Dosage: UNK, AS NEEDED (1-2 TABS PO EVERY 6 HOURS AS NEEDED)
     Route: 048
  13. ATIVAN [Concomitant]
     Active Substance: LORAZEPAM
     Dosage: 0.5 MG, AS NEEDED (Q 4 HOURS PRN)
     Route: 048
  14. MARINOL (ALLOPURINOL) [Concomitant]
     Active Substance: ALLOPURINOL
     Indication: NAUSEA
  15. ACETAMINOPHEN. [Concomitant]
     Active Substance: ACETAMINOPHEN
     Dosage: 500 MG, AS NEEDED
  16. LISINOPRIL. [Concomitant]
     Active Substance: LISINOPRIL
     Dosage: 30 MG, 1X/DAY
     Route: 048
  17. PROAIR HFA [Concomitant]
     Active Substance: ALBUTEROL SULFATE
     Dosage: 180 UG, AS NEEDED (2PUFFS DAILY PRN)
     Route: 045
  18. VITAMIN D [Concomitant]
     Active Substance: CHOLECALCIFEROL
     Dosage: UNK
  19. VITAMIN D3 [Concomitant]
     Active Substance: CHOLECALCIFEROL
     Dosage: UNK UNK, 1X/DAY
     Route: 048

REACTIONS (2)
  - Nausea [Not Recovered/Not Resolved]
  - Vomiting [Not Recovered/Not Resolved]

NARRATIVE: CASE EVENT DATE: 20161109
